FAERS Safety Report 4447405-0 (Version None)
Quarter: 2004Q3

REPORT INFORMATION
  Report Type: 
  Country: None (occurrence: None)
  Receive Date: 20040823
  Receipt Date: 20040721
  Transmission Date: 20050211
  Serious: No
  Sender: FDA-Public Use
  Company Number: PHEH2004US07864

PATIENT
  Age: 72 Year
  Sex: Female

DRUGS (3)
  1. ZELNORM [Suspect]
     Indication: CONSTIPATION
     Dosage: 2 MG BID
  2. CITRUCEL  POWDER [Concomitant]
  3. AMLODIPINE BESYLATE [Concomitant]

REACTIONS (1)
  - DYSURIA [None]
